FAERS Safety Report 22630415 (Version 1)
Quarter: 2023Q2

REPORT INFORMATION
  Report Type: Spontaneous
  Country: US (occurrence: US)
  Receive Date: 20230622
  Receipt Date: 20230622
  Transmission Date: 20230721
  Serious: No
  Sender: FDA-Public Use
  Company Number: US-Ipsen Biopharmaceuticals, Inc.-2023-15112

PATIENT
  Sex: Male

DRUGS (12)
  1. TAZVERIK [Suspect]
     Active Substance: TAZEMETOSTAT HYDROBROMIDE
     Indication: Product used for unknown indication
     Route: 065
     Dates: start: 20230103
  2. ETOPOSIDE [Concomitant]
     Active Substance: ETOPOSIDE
  3. PREDNISONE [Concomitant]
     Active Substance: PREDNISONE
  4. VINCRISTINE [Concomitant]
     Active Substance: VINCRISTINE
  5. CYCLOPHOSPHAMIDE [Concomitant]
     Active Substance: CYCLOPHOSPHAMIDE
  6. DOXORUBICIN [Concomitant]
     Active Substance: DOXORUBICIN
  7. GEMCITABINE [Concomitant]
     Active Substance: GEMCITABINE
  8. OXALIPLATIN [Concomitant]
     Active Substance: OXALIPLATIN
  9. BENDAMUSTINE [Concomitant]
     Active Substance: BENDAMUSTINE
  10. BELINOSTAT [Concomitant]
     Active Substance: BELINOSTAT
  11. GAZYVA [Concomitant]
     Active Substance: OBINUTUZUMAB
  12. RITUXAN [Concomitant]
     Active Substance: RITUXIMAB

REACTIONS (1)
  - Disease progression [Unknown]
